FAERS Safety Report 6701983-7 (Version None)
Quarter: 2010Q2

REPORT INFORMATION
  Report Type: 
  Country: None (occurrence: None)
  Receive Date: 20100429
  Receipt Date: 20100420
  Transmission Date: 20101027
  Serious: Yes (Other)
  Sender: FDA-Public Use
  Company Number: BR-ASTRAZENECA-2010SE18254

PATIENT
  Age: 78 Year
  Sex: Male

DRUGS (3)
  1. ATACAND [Suspect]
     Indication: HYPERTENSION
     Route: 048
     Dates: start: 20080101, end: 20100301
  2. ATACAND [Suspect]
     Route: 048
  3. WARFARIN SODIUM [Concomitant]
     Dosage: DAILY
     Route: 048
     Dates: end: 20100401

REACTIONS (3)
  - BLOOD DISORDER [None]
  - HYPOTENSION [None]
  - PALLOR [None]
